FAERS Safety Report 10279713 (Version 4)
Quarter: 2014Q3

REPORT INFORMATION
  Report Type: Report from Study
  Country: US (occurrence: US)
  Receive Date: 20140707
  Receipt Date: 20140724
  Transmission Date: 20150326
  Serious: Yes (Hospitalization)
  Sender: FDA-Public Use
  Company Number: US-JNJFOC-20140701003

PATIENT
  Age: 9 Year
  Sex: Female
  Weight: 35 kg

DRUGS (8)
  1. PHENOL. [Concomitant]
     Active Substance: PHENOL
     Indication: PHARYNGITIS STREPTOCOCCAL
     Dosage: Q1-2H (EVERY 1 TO 2 HOURS)
     Route: 061
     Dates: start: 20140601, end: 20140604
  2. NALBUPHINE [Concomitant]
     Active Substance: NALBUPHINE
     Indication: PHARYNGITIS STREPTOCOCCAL
     Route: 048
     Dates: start: 20140601, end: 20140605
  3. CEPHALEXIN. [Concomitant]
     Active Substance: CEPHALEXIN
     Indication: PHARYNGITIS STREPTOCOCCAL
     Route: 048
     Dates: start: 20140601
  4. PARACETAMOL [Concomitant]
     Active Substance: ACETAMINOPHEN
     Indication: PHARYNGITIS STREPTOCOCCAL
     Route: 048
     Dates: start: 20140601, end: 20140601
  5. GOLIMUMAB [Suspect]
     Active Substance: GOLIMUMAB
     Indication: COLITIS ULCERATIVE
     Route: 058
     Dates: start: 20140605
  6. AZATHIOPRINE. [Concomitant]
     Active Substance: AZATHIOPRINE
     Indication: COLITIS ULCERATIVE
     Route: 048
     Dates: start: 201309
  7. DEPAKOTE [Concomitant]
     Active Substance: DIVALPROEX SODIUM
     Indication: EPILEPSY
     Route: 048
     Dates: start: 201210
  8. GOLIMUMAB [Suspect]
     Active Substance: GOLIMUMAB
     Route: 058

REACTIONS (1)
  - Colitis ulcerative [Recovering/Resolving]

NARRATIVE: CASE EVENT DATE: 20140625
